FAERS Safety Report 8543444-9 (Version None)
Quarter: 2012Q3

REPORT INFORMATION
  Report Type: 
  Country: None (occurrence: None)
  Receive Date: 20120727
  Receipt Date: 20120726
  Transmission Date: 20120928
  Serious: Yes (Hospitalization)
  Sender: FDA-Public Use
  Company Number: CH-PFIZER INC-2012180857

PATIENT
  Age: 77 Year
  Sex: Female
  Weight: 88 kg

DRUGS (6)
  1. ALDACTONE [Suspect]
     Dosage: UNK
     Dates: end: 20120401
  2. ATENOLOL [Suspect]
     Dosage: UNK
     Route: 048
     Dates: end: 20120401
  3. AMLODIPINE BESYLATE [Suspect]
     Dosage: UNK
     Route: 048
     Dates: end: 20120401
  4. LITHIUM CARBONATE [Suspect]
     Dosage: 225 MG, 1X/DAY
     Route: 048
     Dates: end: 20120401
  5. COVERSUM COMBI [Suspect]
     Dosage: UNK
     Route: 048
     Dates: end: 20120401
  6. VENLAFAXINE [Suspect]
     Dosage: UNK
     Route: 048
     Dates: end: 20120401

REACTIONS (5)
  - RENAL IMPAIRMENT [None]
  - ATAXIA [None]
  - ACCIDENTAL OVERDOSE [None]
  - DIARRHOEA [None]
  - BRADYCARDIA [None]
